FAERS Safety Report 5118971-7 (Version None)
Quarter: 2006Q3

REPORT INFORMATION
  Report Type: 
  Country: None (occurrence: None)
  Receive Date: 20060927
  Receipt Date: 20060912
  Transmission Date: 20061208
  Serious: Yes (Hospitalization, Other)
  Sender: FDA-Public Use
  Company Number: A-JP2006-12993

PATIENT
  Age: 18 Year
  Sex: Female
  Weight: 59 kg

DRUGS (12)
  1. TRACLEER [Suspect]
     Indication: PULMONARY HYPERTENSION
     Dosage: SEE IMAGE
     Dates: start: 20060719, end: 20060802
  2. TRACLEER [Suspect]
     Indication: PULMONARY HYPERTENSION
     Dosage: SEE IMAGE
     Dates: start: 20060803, end: 20060829
  3. CEFOTIAM HYDROCHLORIDE [Suspect]
  4. SULFAMETHOXAZOLE + TRIMETHOPRIM [Suspect]
     Dosage: 480 MG, QD,
     Dates: start: 20060810
  5. PREDNISOLONE [Concomitant]
  6. FUROSEMIDE [Concomitant]
  7. SPIRONOLACTONE [Concomitant]
  8. ALFACALCIDOL    (ALFACALCIDOL) [Concomitant]
  9. ALENDRONATE SODIUM [Concomitant]
  10. WARFARIN SODIUM [Concomitant]
  11. REBAMIPIDE [Concomitant]
  12. BERAPROST SODIUM (BERAPROST SODIUM) [Concomitant]

REACTIONS (7)
  - GRANULOCYTE COUNT DECREASED [None]
  - HYPOXIA [None]
  - LARYNGOPHARYNGITIS [None]
  - LEUKOPENIA [None]
  - MENINGITIS ASEPTIC [None]
  - NEUTROPENIA [None]
  - PNEUMONIA [None]
